FAERS Safety Report 8928940 (Version 4)
Quarter: 2013Q1

REPORT INFORMATION
  Report Type: Report from Study
  Country: US (occurrence: US)
  Receive Date: 20121128
  Receipt Date: 20130115
  Transmission Date: 20140127
  Serious: Yes (Hospitalization)
  Sender: FDA-Public Use
  Company Number: US-BRISTOL-MYERS SQUIBB COMPANY-17138140

PATIENT
  Age: 51 Year
  Sex: Male
  Weight: 72.48 kg

DRUGS (8)
  1. IPILIMUMAB [Suspect]
     Indication: MALIGNANT MELANOMA
     Dosage: LAST DOSE-02OCT12; TOTAL 248.4MG
     Route: 042
     Dates: start: 20120731
  2. CENTRUM SILVER [Concomitant]
     Indication: SUPPLEMENTATION THERAPY
     Dosage: 1DF: 100-250MG
     Dates: start: 2010
  3. FISH OIL [Concomitant]
     Indication: SUPPLEMENTATION THERAPY
     Dates: start: 2008
  4. VITAMIN C [Concomitant]
     Indication: SUPPLEMENTATION THERAPY
     Dates: start: 2005
  5. GLUCOSAMINE [Concomitant]
     Indication: SUPPLEMENTATION THERAPY
     Dates: start: 2011
  6. MINOXIDIL [Concomitant]
     Dosage: SPRAY
     Dates: start: 2008
  7. IMMODIUM [Concomitant]
     Dosage: 1DF: 1-2TABS
     Dates: start: 20121012
  8. POTASSIUM CHLORIDE [Concomitant]
     Indication: SUPPLEMENTATION THERAPY
     Dates: start: 20121016

REACTIONS (3)
  - Diarrhoea [Recovering/Resolving]
  - Dehydration [Unknown]
  - Colitis [Unknown]
